FAERS Safety Report 22031351 (Version 1)
Quarter: 2023Q1

REPORT INFORMATION
  Report Type: Spontaneous
  Country: CH (occurrence: CH)
  Receive Date: 20230224
  Receipt Date: 20230224
  Transmission Date: 20230418
  Serious: Yes (Other)
  Sender: FDA-Public Use
  Company Number: CH-ABBVIE-4311857

PATIENT
  Age: 53 Year
  Sex: Male

DRUGS (22)
  1. VENETOCLAX [Suspect]
     Active Substance: VENETOCLAX
     Indication: Acute myeloid leukaemia
     Route: 048
     Dates: start: 20220614, end: 20220706
  2. CIMETIDINE [Concomitant]
     Active Substance: CIMETIDINE
     Indication: Product used for unknown indication
     Route: 048
     Dates: start: 20220807, end: 20220814
  3. DIFLUCAN [Concomitant]
     Active Substance: FLUCONAZOLE
     Indication: Product used for unknown indication
     Route: 048
     Dates: start: 20220624, end: 20220710
  4. Sulfamethoxazole, Trimethoprim (Nopil) [Concomitant]
     Indication: Product used for unknown indication
     Dosage: TIME INTERVAL: 0.33333333 WEEKS: 800/160 MG
     Route: 048
     Dates: start: 2022
  5. FOLIC ACID [Concomitant]
     Active Substance: FOLIC ACID
     Indication: Product used for unknown indication
     Route: 048
     Dates: start: 20220812
  6. VANCOMYCIN [Concomitant]
     Active Substance: VANCOMYCIN
     Indication: Product used for unknown indication
     Route: 042
     Dates: start: 20220711, end: 20220713
  7. VANCOMYCIN [Concomitant]
     Active Substance: VANCOMYCIN
     Indication: Product used for unknown indication
     Route: 048
     Dates: start: 20220729, end: 20220817
  8. VANCOMYCIN [Concomitant]
     Active Substance: VANCOMYCIN
     Indication: Product used for unknown indication
     Route: 042
     Dates: start: 20220724, end: 20220728
  9. Filgrastim (Filgrastim teva) [Concomitant]
     Indication: Product used for unknown indication
     Route: 058
     Dates: start: 20220713, end: 20220725
  10. AMBISOME [Suspect]
     Active Substance: AMPHOTERICIN B
     Indication: Product used for unknown indication
     Route: 042
     Dates: start: 20220720, end: 20220730
  11. VORICONAZOLE [Suspect]
     Active Substance: VORICONAZOLE
     Indication: Product used for unknown indication
     Route: 048
     Dates: start: 20220710, end: 20220720
  12. CRESEMBA [Suspect]
     Active Substance: ISAVUCONAZONIUM SULFATE
     Indication: Product used for unknown indication
     Route: 048
     Dates: start: 20220730
  13. Codeine phosphate hemihydrate (Makatussin) [Concomitant]
     Indication: Product used for unknown indication
     Route: 048
     Dates: start: 20220806, end: 20220813
  14. VALACYCLOVIR HYDROCHLORIDE [Concomitant]
     Active Substance: VALACYCLOVIR HYDROCHLORIDE
     Indication: Product used for unknown indication
     Route: 048
  15. CEFEPIME HYDROCHLORIDE [Concomitant]
     Active Substance: CEFEPIME HYDROCHLORIDE
     Indication: Product used for unknown indication
     Dates: start: 20220711, end: 20220811
  16. Nirmatrelvir, Ritonavir (Paxlovid) [Concomitant]
     Indication: Product used for unknown indication
     Route: 048
     Dates: start: 20220720, end: 20220725
  17. Paracetamol (Dafalgan) [Concomitant]
     Indication: Product used for unknown indication
     Route: 048
     Dates: start: 20220713, end: 20220724
  18. Colecalciferol (Vitamin d3) [Concomitant]
     Indication: Product used for unknown indication
     Route: 048
  19. Magnesium aspartate hydrochloride (Magnesiocard) [Concomitant]
     Indication: Product used for unknown indication
     Route: 048
     Dates: start: 20220624
  20. REMERON [Concomitant]
     Active Substance: MIRTAZAPINE
     Indication: Product used for unknown indication
     Route: 048
     Dates: start: 20220718
  21. GILTERITINIB [Suspect]
     Active Substance: GILTERITINIB
     Indication: Product used for unknown indication
     Route: 065
     Dates: start: 20220614, end: 20220706
  22. AZACITIDINE [Suspect]
     Active Substance: AZACITIDINE
     Indication: Product used for unknown indication
     Dosage: 1 TOTAL
     Route: 065
     Dates: start: 20220614, end: 20220618

REACTIONS (13)
  - Traumatic haemothorax [Recovered/Resolved]
  - Neutropenia [Recovering/Resolving]
  - COVID-19 [Unknown]
  - Pneumonia [Unknown]
  - Hypertension [Unknown]
  - Colitis [Unknown]
  - Traumatic haemothorax [Unknown]
  - Acute kidney injury [Unknown]
  - Conjunctivitis [Unknown]
  - Pancytopenia [Recovering/Resolving]
  - Hyponatraemia [Unknown]
  - Drug-induced liver injury [Recovering/Resolving]
  - Migraine [Not Recovered/Not Resolved]

NARRATIVE: CASE EVENT DATE: 20220701
